FAERS Safety Report 20373344 (Version 1)
Quarter: 2022Q1

REPORT INFORMATION
  Report Type: Spontaneous
  Country: FR (occurrence: FR)
  Receive Date: 20220125
  Receipt Date: 20220125
  Transmission Date: 20220423
  Serious: Yes (Other)
  Sender: FDA-Public Use
  Company Number: None

PATIENT
  Age: 10 Year
  Sex: Male
  Weight: 40 kg

DRUGS (1)
  1. VIMPAT [Suspect]
     Active Substance: LACOSAMIDE
     Indication: Epilepsy
     Dosage: UNK
     Route: 048
     Dates: start: 20200217, end: 20210620

REACTIONS (2)
  - Growth retardation [Not Recovered/Not Resolved]
  - Tooth development disorder [Not Recovered/Not Resolved]

NARRATIVE: CASE EVENT DATE: 20200217
